FAERS Safety Report 10208790 (Version 1)
Quarter: 2014Q2

REPORT INFORMATION
  Report Type: Spontaneous
  Country: US (occurrence: DE)
  Receive Date: 20140530
  Receipt Date: 20140530
  Transmission Date: 20141212
  Serious: Yes (Hospitalization)
  Sender: FDA-Public Use
  Company Number: 2014SP002979

PATIENT
  Age: 17 Year
  Sex: Female
  Weight: 73 kg

DRUGS (3)
  1. METHOTREXATE [Suspect]
     Indication: PRODUCT USED FOR UNKNOWN INDICATION
     Dates: start: 20140306
  2. ETANERCEPT [Suspect]
     Indication: PRODUCT USED FOR UNKNOWN INDICATION
     Dates: start: 20131118, end: 20140122
  3. ADALIMUMAB [Suspect]
     Dates: start: 20140306

REACTIONS (1)
  - Osteomyelitis [Recovered/Resolved]
